FAERS Safety Report 19705024 (Version 2)
Quarter: 2021Q4

REPORT INFORMATION
  Report Type: Spontaneous
  Country: US (occurrence: US)
  Receive Date: 20210816
  Receipt Date: 20211011
  Transmission Date: 20220304
  Serious: No
  Sender: FDA-Public Use
  Company Number: US-GSKCCFUS-CASE-01135181_AE-66798

PATIENT
  Sex: Male

DRUGS (2)
  1. TRELEGY ELLIPTA [Suspect]
     Active Substance: FLUTICASONE FUROATE\UMECLIDINIUM BROMIDE\VILANTEROL TRIFENATATE
     Indication: Product used for unknown indication
     Dosage: UNK,100/62.5/25 MCG
     Route: 055
     Dates: start: 202107
  2. COMBIVENT RESPIMAT (ALBUTEROL AND IPRATROPIUM BROMIDE) [Concomitant]
     Indication: Product used for unknown indication
     Dosage: UNK

REACTIONS (4)
  - Productive cough [Recovered/Resolved]
  - Prostatic disorder [Recovered/Resolved]
  - Adrenal disorder [Recovered/Resolved]
  - Fatigue [Recovered/Resolved]
